FAERS Safety Report 5492769-2 (Version None)
Quarter: 2007Q4

REPORT INFORMATION
  Report Type: 
  Country: None (occurrence: None)
  Receive Date: 20071023
  Receipt Date: 20071015
  Transmission Date: 20080405
  Serious: Yes (Other)
  Sender: FDA-Public Use
  Company Number: PHEH2007US12443

PATIENT
  Age: 59 Year
  Sex: Female

DRUGS (6)
  1. LOTENSIN [Suspect]
     Indication: HYPERTENSION
     Dosage: 40 MG, QD
     Route: 048
     Dates: start: 20070223
  2. LOTREL [Suspect]
     Indication: HYPERTENSION
     Dosage: UNK, QD
     Route: 048
     Dates: start: 20070901, end: 20070901
  3. ASPIRIN [Concomitant]
     Dosage: 81 MG, BID
     Route: 048
     Dates: start: 20070223
  4. HUMALOG [Concomitant]
     Indication: DIABETES MELLITUS
     Dosage: VARIOUS DOSES, AC
     Route: 058
     Dates: start: 20070223
  5. VYTORIN [Concomitant]
     Indication: HYPERLIPIDAEMIA
     Dosage: 10/20MG, QD
     Route: 048
     Dates: start: 20070223
  6. LANTUS [Concomitant]
     Indication: DIABETES MELLITUS
     Dosage: 56 U, QD
     Route: 058
     Dates: start: 20070223

REACTIONS (7)
  - ASTHENIA [None]
  - CHEST PAIN [None]
  - MICROALBUMINURIA [None]
  - PAIN IN JAW [None]
  - PALPITATIONS [None]
  - PROTEINURIA [None]
  - WHITE BLOOD CELL COUNT DECREASED [None]
